FAERS Safety Report 7511861-1 (Version None)
Quarter: 2011Q2

REPORT INFORMATION
  Report Type: 
  Country: None (occurrence: None)
  Receive Date: 20110531
  Receipt Date: 20110525
  Transmission Date: 20111010
  Serious: Yes (Other)
  Sender: FDA-Public Use
  Company Number: ES-PFIZER INC-2011113571

PATIENT
  Age: 36 Year
  Sex: Male

DRUGS (3)
  1. LYRICA [Suspect]
     Dosage: 75 MG, 2X/DAY
  2. LYRICA [Suspect]
     Indication: NEURALGIA
     Dosage: 75 MG, 1X/DAY
  3. LYRICA [Suspect]
     Dosage: 75 MG, 3X/DAY

REACTIONS (4)
  - ASPIRATION [None]
  - MUSCLE SPASMS [None]
  - VOMITING [None]
  - ABNORMAL DREAMS [None]
